FAERS Safety Report 4634481-5 (Version None)
Quarter: 2005Q2

REPORT INFORMATION
  Report Type: 
  Country: None (occurrence: None)
  Receive Date: 20050412
  Receipt Date: 20050330
  Transmission Date: 20051028
  Serious: Yes (Death, Hospitalization)
  Sender: FDA-Public Use
  Company Number: HQWYE628901APR05

PATIENT
  Age: 52 Year
  Sex: Female

DRUGS (3)
  1. RAPAMUNE [Suspect]
     Indication: IMMUNOSUPPRESSION
     Dosage: 2 MG 1X PER 1 DAY ORAL
     Route: 048
     Dates: start: 20041007, end: 20050316
  2. PREDNISONE [Concomitant]
  3. CELLCEPT [Concomitant]

REACTIONS (3)
  - HEPATITIS [None]
  - LEUKOPENIA [None]
  - PYREXIA [None]
